FAERS Safety Report 14326557 (Version 1)
Quarter: 2017Q4

REPORT INFORMATION
  Report Type: Spontaneous
  Country: US (occurrence: US)
  Receive Date: 20171226
  Receipt Date: 20171226
  Transmission Date: 20180321
  Serious: Yes (Other)
  Sender: FDA-Public Use
  Company Number: None

PATIENT
  Age: 54 Year
  Sex: Male
  Weight: 75.15 kg

DRUGS (19)
  1. ONDANSETRON [Concomitant]
     Active Substance: ONDANSETRON
  2. BISACODYL. [Concomitant]
     Active Substance: BISACODYL
  3. FENTANYL. [Concomitant]
     Active Substance: FENTANYL
  4. HYDROMORPHINE [Concomitant]
     Active Substance: HYDROMORPHONE
  5. NARCAN [Concomitant]
     Active Substance: NALOXONE HYDROCHLORIDE
  6. PEG 3500 [Concomitant]
  7. QUETIAPINE. [Concomitant]
     Active Substance: QUETIAPINE
  8. TYLENOL [Concomitant]
     Active Substance: ACETAMINOPHEN
  9. FAMOTIDINE. [Concomitant]
     Active Substance: FAMOTIDINE
  10. LACTULOSE. [Concomitant]
     Active Substance: LACTULOSE
  11. LORAZEPAM. [Concomitant]
     Active Substance: LORAZEPAM
  12. SIMETHICONE (DIMETHICONE) [Concomitant]
     Active Substance: DIMETHICONE
  13. CAPECITABINE. [Suspect]
     Active Substance: CAPECITABINE
     Indication: PANCREATIC CARCINOMA
     Route: 048
     Dates: start: 20171012, end: 20171226
  14. TRAMADOL. [Concomitant]
     Active Substance: TRAMADOL
  15. DULOXETINE. [Concomitant]
     Active Substance: DULOXETINE
  16. MAGNESIUM CITRATE. [Concomitant]
     Active Substance: MAGNESIUM CITRATE
  17. PANTOPRAZOLE [Concomitant]
     Active Substance: PANTOPRAZOLE
  18. GABAPENTIN. [Concomitant]
     Active Substance: GABAPENTIN
  19. SENOKOT-S [Concomitant]
     Active Substance: DOCUSATE SODIUM\SENNOSIDES

REACTIONS (1)
  - Drug ineffective [None]
